FAERS Safety Report 7250997-X (Version None)
Quarter: 2011Q1

REPORT INFORMATION
  Report Type: 
  Country: None (occurrence: None)
  Receive Date: 20110128
  Receipt Date: 20110121
  Transmission Date: 20110831
  Serious: Yes (Other)
  Sender: FDA-Public Use
  Company Number: B0695735A

PATIENT

DRUGS (2)
  1. TYKERB [Suspect]
     Route: 048
  2. XELODA [Concomitant]
     Route: 048

REACTIONS (4)
  - PALMAR-PLANTAR ERYTHRODYSAESTHESIA SYNDROME [None]
  - LIMB DEFORMITY [None]
  - DIARRHOEA [None]
  - OEDEMA PERIPHERAL [None]
